FAERS Safety Report 9917463 (Version 1)
Quarter: 2014Q1

REPORT INFORMATION
  Report Type: Spontaneous
  Country: US (occurrence: US)
  Receive Date: 20140221
  Receipt Date: 20140221
  Transmission Date: 20141002
  Serious: No
  Sender: FDA-Public Use
  Company Number: US-PFIZER INC-2014051005

PATIENT
  Age: 70 Year
  Sex: Female
  Weight: 54.42 kg

DRUGS (9)
  1. CHANTIX [Suspect]
     Indication: SMOKING CESSATION THERAPY
     Dosage: UNK
     Route: 048
  2. SPIRIVA [Concomitant]
     Indication: CHRONIC OBSTRUCTIVE PULMONARY DISEASE
     Dosage: UNK
  3. SYMBICORT [Concomitant]
     Indication: CHRONIC OBSTRUCTIVE PULMONARY DISEASE
     Dosage: UNK
  4. LISINOPRIL [Concomitant]
     Indication: HYPERTENSION
     Dosage: UNK, DAILY
  5. AMLODIPINE [Concomitant]
     Indication: HYPERTENSION
     Dosage: UNK
  6. CARVEDILOL [Concomitant]
     Indication: CARDIAC DISORDER
     Dosage: UNK, 2X/DAY
  7. XARELTO [Concomitant]
     Indication: CARDIAC DISORDER
     Dosage: UNK, DAILY
  8. CLONAZEPAM [Concomitant]
     Dosage: UNK
  9. FLUOXETINE [Concomitant]
     Dosage: UNK

REACTIONS (2)
  - Colitis [Unknown]
  - Abdominal distension [Unknown]
